FAERS Safety Report 6299153-2 (Version None)
Quarter: 2009Q3

REPORT INFORMATION
  Report Type: 
  Country: None (occurrence: None)
  Receive Date: 20090804
  Receipt Date: 20090724
  Transmission Date: 20100115
  Serious: Yes (Other)
  Sender: FDA-Public Use
  Company Number: GXKR2009JP08466

PATIENT
  Age: 41 Year
  Sex: Female

DRUGS (2)
  1. RIBAVIRIN [Suspect]
     Indication: HEPATITIS C
     Dosage: 600 MG/DAY
     Dates: start: 20060601, end: 20061101
  2. PEG-INTRON [Suspect]
     Indication: HEPATITIS C
     Dosage: 1.5 UG/KG/WEEK
     Dates: start: 20060601, end: 20061101

REACTIONS (4)
  - DIARRHOEA HAEMORRHAGIC [None]
  - MUCOSAL EROSION [None]
  - POUCHITIS [None]
  - PRURITUS [None]
